FAERS Safety Report 7776352-1 (Version None)
Quarter: 2011Q3

REPORT INFORMATION
  Report Type: 
  Country: None (occurrence: None)
  Receive Date: 20110921
  Receipt Date: 20110921
  Transmission Date: 20111222
  Serious: Yes (Other)
  Sender: FDA-Public Use
  Company Number: None

PATIENT
  Age: 53 Year
  Sex: Female
  Weight: 90.7194 kg

DRUGS (1)
  1. TOPIRAMATE [Suspect]
     Indication: MIGRAINE PROPHYLAXIS
     Dosage: 100MG DAILY P.O.
     Route: 048
     Dates: start: 20110608, end: 20110629

REACTIONS (5)
  - LIBIDO INCREASED [None]
  - EXHIBITIONISM [None]
  - EUPHORIC MOOD [None]
  - ORGASM ABNORMAL [None]
  - DISINHIBITION [None]
